FAERS Safety Report 4899363-2 (Version None)
Quarter: 2006Q1

REPORT INFORMATION
  Report Type: 
  Country: None (occurrence: None)
  Receive Date: 20060106
  Receipt Date: 20050826
  Transmission Date: 20060701
  Serious: No
  Sender: FDA-Public Use
  Company Number: 200420526BWH

PATIENT
  Age: 37 Year
  Sex: Male
  Weight: 81.6475 kg

DRUGS (2)
  1. LEVITRA [Suspect]
     Indication: ERECTILE DYSFUNCTION
     Dosage: 10 MG, ONCE, ORAL; 10 MG, ONCE, ORAL
     Route: 048
     Dates: start: 20040910
  2. LEVITRA [Suspect]
     Indication: ERECTILE DYSFUNCTION
     Dosage: 10 MG, ONCE, ORAL; 10 MG, ONCE, ORAL
     Route: 048
     Dates: start: 20050826

REACTIONS (2)
  - ERECTION INCREASED [None]
  - PENILE PAIN [None]
